FAERS Safety Report 20493694 (Version 1)
Quarter: 2022Q1

REPORT INFORMATION
  Report Type: Spontaneous
  Country: US (occurrence: US)
  Receive Date: 20220221
  Receipt Date: 20220221
  Transmission Date: 20220423
  Serious: No
  Sender: FDA-Public Use
  Company Number: US-TARO-2021TAR01156

PATIENT

DRUGS (1)
  1. TRETINOIN [Suspect]
     Active Substance: TRETINOIN
     Indication: Milia
     Dosage: UNK, OD,AS PRESCRIBED APPLIED AT NIGHT,ON FACE IN AFFECTED AREA
     Route: 061
     Dates: start: 202006, end: 202011

REACTIONS (2)
  - Product use in unapproved indication [Unknown]
  - Vascular rupture [Not Recovered/Not Resolved]

NARRATIVE: CASE EVENT DATE: 20200601
